FAERS Safety Report 23715481 (Version 2)
Quarter: 2024Q2

REPORT INFORMATION
  Report Type: Report from Study
  Country: US (occurrence: US)
  Receive Date: 20240407
  Receipt Date: 20240417
  Transmission Date: 20240715
  Serious: Yes (Hospitalization, Other)
  Sender: FDA-Public Use
  Company Number: US-ABBVIE-5706322

PATIENT
  Sex: Female

DRUGS (2)
  1. RINVOQ [Suspect]
     Active Substance: UPADACITINIB
     Indication: Colitis ulcerative
     Route: 048
  2. RINVOQ [Suspect]
     Active Substance: UPADACITINIB
     Indication: Colitis ulcerative
     Route: 048

REACTIONS (7)
  - Ankle fracture [Not Recovered/Not Resolved]
  - Colitis ulcerative [Unknown]
  - Nausea [Unknown]
  - Crohn^s disease [Not Recovered/Not Resolved]
  - Joint dislocation [Unknown]
  - Dehydration [Not Recovered/Not Resolved]
  - Loss of consciousness [Not Recovered/Not Resolved]
